FAERS Safety Report 7437357-3 (Version None)
Quarter: 2011Q2

REPORT INFORMATION
  Report Type: 
  Country: None (occurrence: None)
  Receive Date: 20110426
  Receipt Date: 20110412
  Transmission Date: 20111010
  Serious: Yes (Other)
  Sender: FDA-Public Use
  Company Number: PHHY2011US31185

PATIENT
  Age: 41 Year
  Sex: Female

DRUGS (4)
  1. CITALOPRAM [Concomitant]
  2. LETROZOLE [Suspect]
     Indication: BREAST CANCER METASTATIC
     Route: 065
  3. LORAZEPAM [Concomitant]
  4. GRANULOCYTE COLONY STIMULATING FACTOR [Concomitant]

REACTIONS (1)
  - NEUTROPHIL PELGER-HUET ANOMALY PRESENT [None]
